FAERS Safety Report 7457098-6 (Version None)
Quarter: 2011Q2

REPORT INFORMATION
  Report Type: 
  Country: None (occurrence: None)
  Receive Date: 20110504
  Receipt Date: 20110420
  Transmission Date: 20111010
  Serious: Yes (Hospitalization)
  Sender: FDA-Public Use
  Company Number: MA-RANBAXY-2011RR-44077

PATIENT
  Age: 32 Year
  Sex: Male

DRUGS (4)
  1. LEVOMEPROMAZINE [Suspect]
  2. TRIHEXYPHENIDYL [Suspect]
  3. HALOPERIDOL [Suspect]
  4. PHENOBARBITAL [Suspect]
     Indication: CONVULSION

REACTIONS (2)
  - CONVULSION [None]
  - EXTRAPYRAMIDAL DISORDER [None]
